FAERS Safety Report 23832591 (Version 1)
Quarter: 2024Q2

REPORT INFORMATION
  Report Type: Spontaneous
  Country: CA (occurrence: CA)
  Receive Date: 20240508
  Receipt Date: 20240508
  Transmission Date: 20240716
  Serious: Yes (Other)
  Sender: FDA-Public Use
  Company Number: CA-AMGEN-CANSP2024088242

PATIENT
  Age: 7 Year
  Sex: Female

DRUGS (1)
  1. XGEVA [Suspect]
     Active Substance: DENOSUMAB
     Indication: Bone giant cell tumour
     Dosage: 1.7 MILLIGRAM/KILOGRAM, Q4WK
     Route: 058

REACTIONS (2)
  - Osteosclerosis [Unknown]
  - Off label use [Unknown]
